FAERS Safety Report 16469755 (Version 1)
Quarter: 2019Q3

REPORT INFORMATION
  Report Type: Spontaneous
  Country: GB (occurrence: GB)
  Receive Date: 20190623
  Receipt Date: 20190623
  Transmission Date: 20191004
  Serious: Yes (Disabling)
  Sender: FDA-Public Use
  Company Number: None

PATIENT
  Age: 58 Year
  Sex: Female
  Weight: 60 kg

DRUGS (3)
  1. OMEGA 3, 6 AND 9 [Concomitant]
  2. ALVESCO [Suspect]
     Active Substance: CICLESONIDE
     Indication: ASTHMA EXERCISE INDUCED
     Dosage: ?          QUANTITY:1 PUFF(S);?
     Route: 055
  3. HRT [Concomitant]
     Active Substance: UNSPECIFIED INGREDIENT

REACTIONS (1)
  - Muscular weakness [None]
